FAERS Safety Report 11286290 (Version 1)
Quarter: 2015Q3

REPORT INFORMATION
  Report Type: Spontaneous
  Country: US (occurrence: US)
  Receive Date: 20150721
  Receipt Date: 20150721
  Transmission Date: 20151125
  Serious: No
  Sender: FDA-Public Use
  Company Number: US-UNITED THERAPEUTICS-UNT-2015-003098

PATIENT
  Age: 79 Year
  Sex: Female
  Weight: 80.27 kg

DRUGS (4)
  1. ORENITRAM [Suspect]
     Active Substance: TREPROSTINIL
     Indication: PULMONARY HYPERTENSION
     Dosage: 1.75 MG, Q8H
     Route: 048
     Dates: start: 20141217
  2. ORENITRAM [Suspect]
     Active Substance: TREPROSTINIL
     Dosage: 1.75 MG,Q8H
     Route: 048
     Dates: start: 20141217
  3. ORENITRAM [Suspect]
     Active Substance: TREPROSTINIL
     Dosage: 2.25 MG,Q8H
     Route: 048
     Dates: start: 20141217
  4. ORENITRAM [Suspect]
     Active Substance: TREPROSTINIL
     Dosage: 2.25 MG, Q8H

REACTIONS (7)
  - Secretion discharge [Unknown]
  - Abdominal discomfort [Unknown]
  - Haematuria [Unknown]
  - Abdominal pain lower [Unknown]
  - Diarrhoea [Unknown]
  - Headache [Unknown]
  - Pain in extremity [Unknown]

NARRATIVE: CASE EVENT DATE: 20150420
